FAERS Safety Report 19828707 (Version 2)
Quarter: 2021Q3

REPORT INFORMATION
  Report Type: Spontaneous
  Country: ES (occurrence: ES)
  Receive Date: 20210914
  Receipt Date: 20210916
  Transmission Date: 20211014
  Serious: Yes (Death, Other)
  Sender: FDA-Public Use
  Company Number: ES-MYLANLABS-2021M1061537

PATIENT
  Age: 65 Year

DRUGS (9)
  1. EXJADE [Concomitant]
     Active Substance: DEFERASIROX
     Indication: PRODUCT USED FOR UNKNOWN INDICATION
     Dosage: UNK
  2. LORAZEPAM. [Concomitant]
     Active Substance: LORAZEPAM
     Indication: PRODUCT USED FOR UNKNOWN INDICATION
     Dosage: UNK
  3. VENETOCLAX. [Suspect]
     Active Substance: VENETOCLAX
     Indication: CHRONIC MYELOMONOCYTIC LEUKAEMIA
     Dosage: UNK
     Route: 048
  4. OMEPRAZOLE. [Concomitant]
     Active Substance: OMEPRAZOLE
     Indication: PRODUCT USED FOR UNKNOWN INDICATION
     Dosage: UNK
  5. AZACITIDINE. [Suspect]
     Active Substance: AZACITIDINE
     Indication: CHRONIC MYELOMONOCYTIC LEUKAEMIA
     Dosage: UNK
     Route: 065
  6. ROSUVASTATIN. [Concomitant]
     Active Substance: ROSUVASTATIN
     Indication: PRODUCT USED FOR UNKNOWN INDICATION
     Dosage: UNK
  7. SILODYX [Concomitant]
     Active Substance: SILODOSIN
     Indication: PRODUCT USED FOR UNKNOWN INDICATION
     Dosage: UNK
  8. HYDREA [Concomitant]
     Active Substance: HYDROXYUREA
     Indication: PRODUCT USED FOR UNKNOWN INDICATION
     Dosage: UNK
  9. HYDREA [Concomitant]
     Active Substance: HYDROXYUREA
     Dosage: UNK

REACTIONS (20)
  - General physical health deterioration [Fatal]
  - Mitral valve incompetence [Unknown]
  - Hypoalbuminaemia [Unknown]
  - Respiratory failure [Unknown]
  - Diarrhoea [Unknown]
  - Pleural effusion [Unknown]
  - Myalgia [Unknown]
  - Blood disorder [Recovering/Resolving]
  - Oedema [Unknown]
  - Febrile neutropenia [Unknown]
  - Pulmonary hypertension [Unknown]
  - Anaemia [Unknown]
  - Aplasia [Fatal]
  - Disseminated trichosporonosis [Fatal]
  - Fungal infection [Fatal]
  - Pericardial effusion [Unknown]
  - Off label use [Unknown]
  - Systemic toxicity [Unknown]
  - Platelet count decreased [Unknown]
  - Atrial enlargement [Unknown]

NARRATIVE: CASE EVENT DATE: 2021
